FAERS Safety Report 7094225-7 (Version None)
Quarter: 2010Q4

REPORT INFORMATION
  Report Type: 
  Country: None (occurrence: None)
  Receive Date: 20101102
  Receipt Date: 20101021
  Transmission Date: 20110411
  Serious: Yes (Hospitalization)
  Sender: FDA-Public Use
  Company Number: 2010-01038

PATIENT
  Age: 75 Year
  Sex: Male

DRUGS (5)
  1. LISINOPRIL [Suspect]
     Indication: PRODUCT USED FOR UNKNOWN INDICATION
     Dosage: ORAL
     Route: 048
  2. ASPIRIN [Concomitant]
  3. ATORVASTATIN (UNKNOWN) [Concomitant]
  4. BENDROFLUMETHIAZIDE (UNKNOWN) [Concomitant]
  5. BISOPROLOL (UNKNOWN) [Concomitant]

REACTIONS (3)
  - ANGIOEDEMA [None]
  - DYSPHAGIA [None]
  - SPEECH DISORDER [None]
